FAERS Safety Report 8281609-4 (Version None)
Quarter: 2012Q2

REPORT INFORMATION
  Report Type: 
  Country: None (occurrence: None)
  Receive Date: 20120410
  Receipt Date: 20120326
  Transmission Date: 20120825
  Serious: Yes (Hospitalization, Other)
  Sender: FDA-Public Use
  Company Number: 2012MA004206

PATIENT
  Age: 7 Week
  Sex: Male
  Weight: 2.6 kg

DRUGS (5)
  1. ATRACURIUM BESYLATE [Suspect]
     Indication: ANAESTHESIA
     Dosage: 1.25 MG;IV
     Route: 042
  2. NEOSTIGMINE [Concomitant]
  3. FEVERALL [Suspect]
     Indication: ANALGESIC THERAPY
     Dosage: 380 MG;IV
     Route: 042
  4. GLYCOPYRROLATE [Concomitant]
  5. BUPIVACAINE HCL [Suspect]
     Indication: ANAESTHESIA
     Dosage: 5 MG

REACTIONS (2)
  - INTERNATIONAL NORMALISED RATIO INCREASED [None]
  - INCORRECT DOSE ADMINISTERED [None]
